FAERS Safety Report 7743484-3 (Version None)
Quarter: 2011Q3

REPORT INFORMATION
  Report Type: 
  Country: None (occurrence: None)
  Receive Date: 20110909
  Receipt Date: 20110909
  Transmission Date: 20111222
  Serious: Yes (Hospitalization)
  Sender: FDA-Public Use
  Company Number: None

PATIENT
  Sex: Male
  Weight: 93.4 kg

DRUGS (3)
  1. ELOXATIN [Suspect]
     Dosage: 142 MG
  2. BEVACIZUMAB (RHUMAB VEGF) [Suspect]
     Dosage: 467 MG
  3. IRINOTECAN HCL [Suspect]
     Dosage: 262 MG

REACTIONS (4)
  - WOUND INFECTION [None]
  - NEUTROPENIA [None]
  - ASTHENIA [None]
  - PYREXIA [None]
